FAERS Safety Report 7090067-7 (Version None)
Quarter: 2010Q4

REPORT INFORMATION
  Report Type: 
  Country: None (occurrence: None)
  Receive Date: 20101104
  Receipt Date: 20101104
  Transmission Date: 20110411
  Serious: No
  Sender: FDA-Public Use
  Company Number: None

PATIENT

DRUGS (1)
  1. PHENYTOIN [Suspect]
     Route: 048

REACTIONS (2)
  - MEDICATION ERROR [None]
  - PRODUCT LABEL CONFUSION [None]
